FAERS Safety Report 9734443 (Version 1)
Quarter: 2013Q4

REPORT INFORMATION
  Report Type: Spontaneous
  Country: US (occurrence: US)
  Receive Date: 20131206
  Receipt Date: 20131206
  Transmission Date: 20140711
  Serious: Yes (Other)
  Sender: FDA-Public Use
  Company Number: US-BEH-2013039208

PATIENT
  Age: 92 Year
  Sex: Female

DRUGS (3)
  1. KCENTRA [Suspect]
     Indication: INTERNATIONAL NORMALISED RATIO ABNORMAL
  2. KCENTRA [Suspect]
     Indication: INTERNATIONAL NORMALISED RATIO ABNORMAL
  3. WARFARIN [Concomitant]

REACTIONS (1)
  - Myocardial infarction [Unknown]
